FAERS Safety Report 9380022 (Version 1)
Quarter: 2013Q3

REPORT INFORMATION
  Report Type: Spontaneous
  Country: JP (occurrence: JP)
  Receive Date: 20130702
  Receipt Date: 20130702
  Transmission Date: 20140515
  Serious: Yes (Hospitalization, Other)
  Sender: FDA-Public Use
  Company Number: JP-PFIZER INC-2013171516

PATIENT
  Age: 78 Year
  Sex: Female

DRUGS (7)
  1. LYRICA [Suspect]
     Dosage: 75 MG, UNK
     Route: 048
     Dates: start: 201202
  2. ERYTHROCIN [Concomitant]
     Dosage: UNK
  3. MECOBALAMIN [Concomitant]
     Dosage: UNK
  4. CLEANAL [Concomitant]
     Indication: BRONCHITIS CHRONIC
     Dosage: 200 MG, 3X/DAY
     Route: 048
     Dates: start: 20100521
  5. AVAPRO [Concomitant]
     Indication: DEPRESSION
     Dosage: 100 MG, 1X/DAY
     Route: 048
     Dates: start: 20100521
  6. CRESTOR [Concomitant]
     Indication: DYSLIPIDAEMIA
     Dosage: 5 MG, 3X/DAY
     Route: 048
     Dates: start: 20110303
  7. TOFRANIL [Concomitant]
     Indication: DEPRESSION
     Dosage: 37.5 MG,DAILY
     Route: 048
     Dates: start: 20120315

REACTIONS (1)
  - Renal failure chronic [Not Recovered/Not Resolved]
